FAERS Safety Report 17341809 (Version 1)
Quarter: 2020Q1

REPORT INFORMATION
  Report Type: Spontaneous
  Country: US (occurrence: US)
  Receive Date: 20200129
  Receipt Date: 20200129
  Transmission Date: 20200409
  Serious: No
  Sender: FDA-Public Use
  Company Number: US-ALLERGAN-1917672US

PATIENT
  Sex: Female

DRUGS (4)
  1. BOTOX COSMETIC [Suspect]
     Active Substance: ONABOTULINUMTOXINA
     Indication: SKIN WRINKLING
     Dosage: 25 UNITS BILATERALLY TO FRONTALIS, CORRUGATOR, PROCERUS, COLLATERAL ORBIT MUSCLES
     Route: 030
     Dates: start: 20190417, end: 20190417
  2. BOTOX COSMETIC [Suspect]
     Active Substance: ONABOTULINUMTOXINA
     Indication: SKIN WRINKLING
     Dosage: 25 UNITS BILATERALLY TO FRONTALIS, CORRUGATOR, PROCERUS, COLLATERAL ORBIT MUSCLES
     Route: 030
     Dates: start: 20190417, end: 20190417
  3. BOTOX COSMETIC [Suspect]
     Active Substance: ONABOTULINUMTOXINA
     Indication: SKIN WRINKLING
     Dosage: 25 UNITS BILATERALLY TO FRONTALIS, CORRUGATOR, PROCERUS, COLLATERAL ORBIT MUSCLES
     Route: 030
     Dates: start: 20190417, end: 20190417
  4. BOTOX COSMETIC [Suspect]
     Active Substance: ONABOTULINUMTOXINA
     Indication: SKIN WRINKLING
     Dosage: 25 UNITS BILATERALLY TO FRONTALIS, CORRUGATOR, PROCERUS, COLLATERAL ORBIT MUSCLES
     Route: 030
     Dates: start: 20190417, end: 20190417

REACTIONS (2)
  - Product preparation error [Unknown]
  - Drug ineffective [Unknown]

NARRATIVE: CASE EVENT DATE: 20190417
